FAERS Safety Report 8601934-4 (Version None)
Quarter: 2012Q3

REPORT INFORMATION
  Report Type: 
  Country: None (occurrence: None)
  Receive Date: 20120817
  Receipt Date: 20120501
  Transmission Date: 20120928
  Serious: No
  Sender: FDA-Public Use
  Company Number: US-BRISTOL-MYERS SQUIBB COMPANY-16656050

PATIENT
  Sex: Male

DRUGS (3)
  1. SPRYCEL [Suspect]
  2. CIALIS [Concomitant]
  3. METFORMIN HYDROCHLORIDE [Concomitant]

REACTIONS (1)
  - RASH [None]
